FAERS Safety Report 17377609 (Version 1)
Quarter: 2020Q1

REPORT INFORMATION
  Report Type: Spontaneous
  Country: US (occurrence: US)
  Receive Date: 20200206
  Receipt Date: 20200206
  Transmission Date: 20200409
  Serious: No
  Sender: FDA-Public Use
  Company Number: US-ABBVIE-19K-163-2618973-00

PATIENT
  Age: 58 Year
  Sex: Male
  Weight: 107.6 kg

DRUGS (14)
  1. HUMIRA [Suspect]
     Active Substance: ADALIMUMAB
     Indication: PSORIASIS
     Route: 058
     Dates: start: 201809
  2. TYLENOL [Concomitant]
     Active Substance: ACETAMINOPHEN
     Indication: HEADACHE
  3. WARFARIN [Concomitant]
     Active Substance: WARFARIN
     Indication: THROMBOSIS
  4. PREDNISONE. [Concomitant]
     Active Substance: PREDNISONE
     Indication: ARTHROPATHY
  5. ROSUVASTATIN. [Concomitant]
     Active Substance: ROSUVASTATIN
     Indication: BLOOD CHOLESTEROL INCREASED
  6. FOLIC ACID. [Concomitant]
     Active Substance: FOLIC ACID
     Indication: LIVER DISORDER
  7. LACTULOSE. [Concomitant]
     Active Substance: LACTULOSE
     Indication: CONSTIPATION
  8. HUMIRA [Suspect]
     Active Substance: ADALIMUMAB
     Indication: ARTHRITIS
     Route: 058
     Dates: start: 2018, end: 201809
  9. PREDNISONE. [Concomitant]
     Active Substance: PREDNISONE
     Indication: HEADACHE
  10. METHOTREXATE. [Concomitant]
     Active Substance: METHOTREXATE
     Indication: ARTHRITIS
  11. TIZANIDINE. [Concomitant]
     Active Substance: TIZANIDINE
     Indication: MUSCLE DISORDER
  12. OXYCODONE [Concomitant]
     Active Substance: OXYCODONE
     Indication: ANALGESIC THERAPY
  13. LYRICA [Concomitant]
     Active Substance: PREGABALIN
     Indication: ARTHRITIS
  14. ENOXAPARIN [Concomitant]
     Active Substance: ENOXAPARIN
     Indication: ANTICOAGULANT THERAPY

REACTIONS (5)
  - Abdominal pain upper [Not Recovered/Not Resolved]
  - Incorrect dose administered [Recovered/Resolved]
  - Device issue [Recovered/Resolved]
  - Nausea [Recovered/Resolved]
  - Nasopharyngitis [Recovered/Resolved]

NARRATIVE: CASE EVENT DATE: 201809
